FAERS Safety Report 6394309-2 (Version None)
Quarter: 2009Q4

REPORT INFORMATION
  Report Type: 
  Country: None (occurrence: None)
  Receive Date: 20091006
  Receipt Date: 20090923
  Transmission Date: 20100525
  Serious: Yes (Other)
  Sender: FDA-Public Use
  Company Number: 1000009197

PATIENT
  Age: 88 Year
  Sex: Female

DRUGS (2)
  1. ESCITALOPRAM [Suspect]
     Dosage: ORAL
     Route: 048
     Dates: start: 20090528, end: 20090528
  2. ENALAPRIL MALEATE [Suspect]
     Dosage: ORAL
     Route: 048
     Dates: start: 20090528, end: 20090528

REACTIONS (4)
  - ASTHENIA [None]
  - EPILEPSY [None]
  - LOSS OF CONSCIOUSNESS [None]
  - PRESYNCOPE [None]
